FAERS Safety Report 6293144 (Version 6)
Quarter: 2013Q4

REPORT INFORMATION
  Report Type: Spontaneous
  Country: US (occurrence: US)
  Receive Date: 20070420
  Receipt Date: 20131031
  Transmission Date: 20140711
  Serious: Yes (Other)
  Sender: FDA-Public Use
  Company Number: US-PFIZER INC-2007029635

PATIENT
  Age: 66 Year
  Sex: Female
  Weight: 50.79 kg

DRUGS (3)
  1. LIPITOR [Suspect]
     Indication: BLOOD CHOLESTEROL INCREASED
     Dosage: UNK
     Dates: start: 1994, end: 20061025
  2. LIPITOR [Suspect]
     Dosage: UNK
     Dates: end: 200611
  3. PREVACID [Concomitant]
     Dosage: UNK

REACTIONS (18)
  - Diabetes mellitus [Not Recovered/Not Resolved]
  - Gait disturbance [Recovering/Resolving]
  - Mobility decreased [Recovering/Resolving]
  - Bedridden [Recovering/Resolving]
  - Loss of control of legs [Recovering/Resolving]
  - Impaired driving ability [Recovered/Resolved]
  - Muscular weakness [Recovering/Resolving]
  - Myalgia [Recovering/Resolving]
  - Muscle disorder [Unknown]
  - Activities of daily living impaired [Recovering/Resolving]
  - Asthenia [Recovering/Resolving]
  - Arthropathy [Recovering/Resolving]
  - Pain in extremity [Recovering/Resolving]
  - Back pain [Recovering/Resolving]
  - Neck pain [Recovering/Resolving]
  - Pain in extremity [Recovering/Resolving]
  - Paraesthesia [Recovering/Resolving]
  - Malaise [Recovering/Resolving]
